FAERS Safety Report 13776179 (Version 6)
Quarter: 2018Q1

REPORT INFORMATION
  Report Type: Report from Study
  Country: US (occurrence: US)
  Receive Date: 20170721
  Receipt Date: 20180116
  Transmission Date: 20180508
  Serious: Yes (Hospitalization, Other)
  Sender: FDA-Public Use
  Company Number: US-PFIZER INC-2017309992

PATIENT
  Age: 35 Year
  Sex: Male
  Weight: 88.4 kg

DRUGS (13)
  1. ALKS8700 [Suspect]
     Active Substance: DIROXIMEL FUMARATE
     Indication: RELAPSING-REMITTING MULTIPLE SCLEROSIS
     Dosage: 231 MG, BID
     Route: 048
     Dates: start: 20170301, end: 20170307
  2. ACETAMINOPHEN. [Concomitant]
     Active Substance: ACETAMINOPHEN
     Dosage: UNK
     Dates: start: 2013
  3. TYLENOL WITH CODEINE [Concomitant]
     Active Substance: ACETAMINOPHEN\CODEINE PHOSPHATE
     Dosage: UNK
     Dates: start: 20170424
  4. INDOCIN [Concomitant]
     Active Substance: INDOMETHACIN
     Dosage: UNK
     Dates: start: 20170126
  5. ASPIRIN /00002701/ [Concomitant]
     Active Substance: ASPIRIN
     Dosage: UNK
     Dates: start: 2013
  6. CHANTIX [Suspect]
     Active Substance: VARENICLINE TARTRATE
     Dosage: 1 MG, 2X/DAY (BID)
     Route: 048
     Dates: start: 20170213, end: 20170219
  7. ADDERALL [Concomitant]
     Active Substance: AMPHETAMINE ASPARTATE\AMPHETAMINE SULFATE\DEXTROAMPHETAMINE SACCHARATE\DEXTROAMPHETAMINE SULFATE
     Dosage: UNK
     Dates: start: 20170319
  8. CHANTIX [Suspect]
     Active Substance: VARENICLINE TARTRATE
     Dosage: 1 MG, 2X/DAY (BID)
     Route: 048
     Dates: start: 20170220, end: 20170605
  9. ALKS8700 [Suspect]
     Active Substance: DIROXIMEL FUMARATE
     Dosage: 462 MG, BID
     Route: 048
     Dates: start: 20170308, end: 20170604
  10. PEPCID [Concomitant]
     Active Substance: FAMOTIDINE
     Dosage: UNK
     Dates: start: 20170111
  11. DEXTROMETHORPHAN HYDROBROMIDE. [Suspect]
     Active Substance: DEXTROMETHORPHAN HYDROBROMIDE
     Dosage: UNK
     Dates: start: 20170604
  12. VITAMIN D [Concomitant]
     Active Substance: CHOLECALCIFEROL
     Dosage: UNK
     Dates: start: 20170106
  13. VICKS NYQUIL [Concomitant]
     Active Substance: ACETAMINOPHEN\DEXTROMETHORPHAN HYDROBROMIDE\DOXYLAMINE SUCCINATE
     Dosage: UNK
     Dates: start: 20170126

REACTIONS (4)
  - Overdose [Recovered/Resolved]
  - Hallucination [Recovered/Resolved]
  - Substance-induced psychotic disorder [Recovered/Resolved]
  - Suicide attempt [Recovered/Resolved]

NARRATIVE: CASE EVENT DATE: 20170605
